FAERS Safety Report 20460613 (Version 2)
Quarter: 2022Q1

REPORT INFORMATION
  Report Type: Other
  Country: TN (occurrence: None)
  Receive Date: 20220211
  Receipt Date: 20220218
  Transmission Date: 20220423
  Serious: Yes (Other)
  Sender: FDA-Public Use
  Company Number: TN-ROCHE-3021860

PATIENT
  Sex: Male

DRUGS (1)
  1. VISMODEGIB [Suspect]
     Active Substance: VISMODEGIB
     Indication: Basal cell carcinoma
     Route: 065

REACTIONS (1)
  - Transient ischaemic attack [Recovered/Resolved]

NARRATIVE: CASE EVENT DATE: 20220205
